FAERS Safety Report 8300957 (Version 3)
Quarter: 2013Q1

REPORT INFORMATION
  Report Type: Spontaneous
  Country: US (occurrence: US)
  Receive Date: 20111219
  Receipt Date: 20130226
  Transmission Date: 20140127
  Serious: No
  Sender: FDA-Public Use
  Company Number: US-ASTRAZENECA-2011SE13423

PATIENT
  Age: 84 Year
  Sex: Female

DRUGS (2)
  1. CRESTOR [Suspect]
     Route: 048
  2. CRESTOR [Suspect]
     Route: 048

REACTIONS (6)
  - Pain [Unknown]
  - Peripheral vascular disorder [Unknown]
  - Sinusitis [Unknown]
  - Hearing impaired [Unknown]
  - Blood pressure increased [Unknown]
  - Blood cholesterol increased [Unknown]
